FAERS Safety Report 23254110 (Version 1)
Quarter: 2023Q4

REPORT INFORMATION
  Report Type: Report from Study
  Country: US (occurrence: US)
  Receive Date: 20231202
  Receipt Date: 20231202
  Transmission Date: 20240110
  Serious: Yes (Hospitalization, Other)
  Sender: FDA-Public Use
  Company Number: US-ABBVIE-5518810

PATIENT
  Sex: Male

DRUGS (1)
  1. HUMIRA [Suspect]
     Active Substance: ADALIMUMAB
     Indication: Product used for unknown indication
     Route: 058

REACTIONS (6)
  - Back pain [Unknown]
  - Condition aggravated [Not Recovered/Not Resolved]
  - Cyst [Unknown]
  - Therapeutic product effect decreased [Unknown]
  - Sepsis [Unknown]
  - Meningitis bacterial [Unknown]
